FAERS Safety Report 16164087 (Version 1)
Quarter: 2019Q2

REPORT INFORMATION
  Report Type: Spontaneous
  Country: AU (occurrence: US)
  Receive Date: 20190405
  Receipt Date: 20190405
  Transmission Date: 20190711
  Serious: No
  Sender: FDA-Public Use
  Company Number: AU-AMGEN-USASP2019048610

PATIENT

DRUGS (1)
  1. PROLIA [Suspect]
     Active Substance: DENOSUMAB
     Indication: OSTEOPOROSIS
     Dosage: UNK
     Route: 065

REACTIONS (20)
  - Hypoaesthesia [Unknown]
  - Arthralgia [Unknown]
  - Dry mouth [Unknown]
  - Decreased appetite [Unknown]
  - Nail disorder [Unknown]
  - Dry eye [Unknown]
  - Alopecia [Unknown]
  - Weight decreased [Unknown]
  - Sensation of foreign body [Unknown]
  - Pain in extremity [Unknown]
  - Dysphonia [Unknown]
  - Abdominal distension [Unknown]
  - Eructation [Unknown]
  - Food intolerance [Unknown]
  - Skin disorder [Unknown]
  - Pruritus [Unknown]
  - Fatigue [Unknown]
  - Skin lesion [Unknown]
  - General physical health deterioration [Unknown]
  - Dyspepsia [Unknown]
